FAERS Safety Report 6655326-8 (Version None)
Quarter: 2010Q1

REPORT INFORMATION
  Report Type: 
  Country: None (occurrence: None)
  Receive Date: 20100318
  Receipt Date: 20091123
  Transmission Date: 20100710
  Serious: Yes (Other)
  Sender: FDA-Public Use
  Company Number: 2009287106

PATIENT
  Sex: Male
  Weight: 79.4 kg

DRUGS (2)
  1. XALATAN [Suspect]
     Indication: GLAUCOMA
     Dosage: 1 GTT, 1X/DAY
     Dates: start: 20090320
  2. LISINOPRIL [Suspect]
     Indication: HYPERTENSION
     Dosage: 5 MG, 1X/DAY, ORAL
     Route: 048
     Dates: start: 20090401, end: 20091014

REACTIONS (1)
  - PAIN [None]
